FAERS Safety Report 4603085-2 (Version None)
Quarter: 2005Q1

REPORT INFORMATION
  Report Type: 
  Country: None (occurrence: None)
  Receive Date: 20050307
  Receipt Date: 20050222
  Transmission Date: 20050727
  Serious: Yes (Death, Other)
  Sender: FDA-Public Use
  Company Number: 2005027458

PATIENT
  Age: 70 Year
  Sex: Male

DRUGS (4)
  1. ADRIAMYCIN PFS [Suspect]
     Indication: BLADDER CANCER STAGE III
     Dosage: 25 MG, INTRAVENOUS
     Route: 042
     Dates: start: 20041202, end: 20041202
  2. METHOTREXATE [Suspect]
     Indication: ILL-DEFINED DISORDER
     Dosage: 20 MG, INTRAVENOUS
     Route: 042
     Dates: start: 20041202, end: 20041202
  3. CISPLATIN [Suspect]
     Indication: ILL-DEFINED DISORDER
     Dosage: 35 MG, INTRAVENOUS
     Route: 042
     Dates: start: 20041203, end: 20041203
  4. VINBLASTINE SULFATE [Concomitant]

REACTIONS (17)
  - ALANINE AMINOTRANSFERASE INCREASED [None]
  - ASPARTATE AMINOTRANSFERASE INCREASED [None]
  - BLOOD POTASSIUM INCREASED [None]
  - BLOOD PRESSURE DECREASED [None]
  - BONE MARROW DEPRESSION [None]
  - CARDIAC ARREST [None]
  - CYANOSIS [None]
  - DIALYSIS [None]
  - DRUG TOXICITY [None]
  - HAEMODIALYSIS [None]
  - ILEUS PARALYTIC [None]
  - LABORATORY TEST ABNORMAL [None]
  - MOUTH BREATHING [None]
  - PYREXIA [None]
  - RENAL IMPAIRMENT [None]
  - THERAPY NON-RESPONDER [None]
  - URINE OUTPUT DECREASED [None]
